FAERS Safety Report 4645913-0 (Version None)
Quarter: 2005Q2

REPORT INFORMATION
  Report Type: 
  Country: None (occurrence: None)
  Receive Date: 20050422
  Receipt Date: 20050422
  Transmission Date: 20051028
  Serious: Yes (Death)
  Sender: FDA-Public Use
  Company Number: None

PATIENT
  Age: 70 Year
  Sex: Male

DRUGS (2)
  1. PLAVIX [Suspect]
     Dosage: 75 MG Q DAY
  2. KETOROLAC [Suspect]
     Indication: PAIN
     Dosage: 30 MG IV X 1
     Route: 042
     Dates: start: 20051228

REACTIONS (8)
  - CARDIAC ARREST [None]
  - FALL [None]
  - GASTROINTESTINAL HAEMORRHAGE [None]
  - HIP FRACTURE [None]
  - POST PROCEDURAL COMPLICATION [None]
  - POST PROCEDURAL HAEMORRHAGE [None]
  - SHOCK HAEMORRHAGIC [None]
  - STRESS ULCER [None]
